FAERS Safety Report 8679965 (Version 2)
Quarter: 2013Q1

REPORT INFORMATION
  Report Type: Spontaneous
  Country: US (occurrence: None)
  Receive Date: 20120706
  Receipt Date: 20130219
  Transmission Date: 20140127
  Serious: Yes (Other)
  Sender: FDA-Public Use
  Company Number: DSU-2012-05229

PATIENT
  Age: 71 Year
  Sex: Female

DRUGS (11)
  1. OLMESARTAN MEDOXOMIL [Suspect]
     Dosage: , PER ORAL
     Route: 048
     Dates: start: 2001, end: 20091105
  2. AMBIEN (ZOLPIDEM TARTRATE) (ZOLPIDEM TARTRATE) [Concomitant]
  3. KLONOPIN [Concomitant]
  4. LANTUS (INSULIN GLARGINE) (INSULIN GLARGINE) [Concomitant]
  5. NOVOLOG (INSULIN ASPART) (INSULIN ASPART) [Concomitant]
  6. PROTONIX [Concomitant]
  7. TYLENOL [Concomitant]
  8. VITAMIN D [Concomitant]
  9. SYNTHROID (LEVOTHYROXINE SODIUM) (LEVOTHYROXINE SODIUM) [Concomitant]
  10. ZOCOR (SIMVASTATIN) (SIMVASTATIN) [Concomitant]
  11. LOPRESSOR (METOPROLOL TARTRATE) (METOPROLOL TARTRATE) [Concomitant]

REACTIONS (4)
  - MALABSORPTION [None]
  - WEIGHT DECREASED [None]
  - GASTRITIS [None]
  - COLITIS [None]
